FAERS Safety Report 4874859-8 (Version None)
Quarter: 2006Q1

REPORT INFORMATION
  Report Type: 
  Country: None (occurrence: None)
  Receive Date: 20060109
  Receipt Date: 20060101
  Transmission Date: 20060701
  Serious: Yes (Other)
  Sender: FDA-Public Use
  Company Number: US-JNJFOC-20060100530

PATIENT
  Sex: Male
  Weight: 68.04 kg

DRUGS (19)
  1. REMICADE [Suspect]
     Indication: CROHN'S DISEASE
     Route: 042
  2. PENTASA [Concomitant]
  3. IMURAN [Concomitant]
  4. IMODIUM [Concomitant]
  5. FOLIC ACID [Concomitant]
  6. VITAMIN E [Concomitant]
  7. MULTIVITAMIN [Concomitant]
  8. MULTIVITAMIN [Concomitant]
  9. MULTIVITAMIN [Concomitant]
  10. MULTIVITAMIN [Concomitant]
  11. MULTIVITAMIN [Concomitant]
  12. MULTIVITAMIN [Concomitant]
  13. MULTIVITAMIN [Concomitant]
  14. MULTIVITAMIN [Concomitant]
  15. ASCORBIC ACID [Concomitant]
  16. FISH OIL [Concomitant]
  17. FLAXSEED OIL [Concomitant]
  18. BETACAROTENE [Concomitant]
  19. ZOREPAM/SLURAZEPAM [Concomitant]

REACTIONS (3)
  - ASTHENIA [None]
  - GRIP STRENGTH DECREASED [None]
  - HYPOAESTHESIA [None]
